FAERS Safety Report 15964873 (Version 5)
Quarter: 2022Q3

REPORT INFORMATION
  Report Type: Report from Study
  Country: BR (occurrence: None)
  Receive Date: 20190215
  Receipt Date: 20220812
  Transmission Date: 20221026
  Serious: Yes (Hospitalization)
  Sender: FDA-Public Use
  Company Number: BR-ROCHE-2262750

PATIENT
  Age: 57 Year
  Sex: Female
  Weight: 56.2 kg

DRUGS (26)
  1. OCRELIZUMAB [Suspect]
     Active Substance: OCRELIZUMAB
     Indication: Primary progressive multiple sclerosis
     Dosage: DUAL INFUSIONS SEPARATED BY 14 DAYS EVERY 24 WEEKS (FREQUENCY AS PER PROTOCOL).?SUBSEQUENT DOSES REC
     Route: 042
     Dates: start: 20120816
  2. OCRELIZUMAB [Suspect]
     Active Substance: OCRELIZUMAB
     Indication: Primary progressive multiple sclerosis
     Dosage: SUBSEQUENT DOSES RECEIVED ON 02/DEC/2015, 05/MAY/2016, 18/MAY/2016, 19/OCT/2016, 03/NOV/2016, 06/APR
     Route: 042
     Dates: start: 20151118
  3. DEXAMETHASONE [Concomitant]
     Active Substance: DEXAMETHASONE
     Dosage: SUBSEQUENT DOSE ON 18/NOV/2015
     Dates: start: 20151202
  4. LORATADINE [Concomitant]
     Active Substance: LORATADINE
     Dosage: SUBSEQUENT DOSE ON 30/AUG/2012, 31/JAN/2013, 14/FEB/2013, 18/JUL/2013, 01/AUG/2013, 26/DEC/2013, 31/
     Dates: start: 20120816
  5. METHYLPREDNISOLONE [Concomitant]
     Active Substance: METHYLPREDNISOLONE
     Indication: Multiple sclerosis
     Dosage: SUBSEQUENT DOSE ON 30/AUG/2012, 31/JAN/2013, 14/FEB/2013, 18/JUL/2013, 01/AUG/2013, 26/DEC/2013, 31/
     Dates: start: 20120816
  6. METHYLPREDNISOLONE [Concomitant]
     Active Substance: METHYLPREDNISOLONE
     Dates: start: 20170114, end: 20170118
  7. ACETAMINOPHEN [Concomitant]
     Active Substance: ACETAMINOPHEN
     Indication: Upper respiratory tract infection
     Dosage: SUBSEQUENT DOSE ON 30/AUG/2012, 31/JAN/2013, 14/FEB/2013, 18/JUL/2013, 01/AUG/2013, 26/DEC/2013, 31/
     Dates: start: 20120816
  8. ACETAMINOPHEN [Concomitant]
     Active Substance: ACETAMINOPHEN
     Dates: start: 20130805, end: 20130818
  9. ACETAMINOPHEN [Concomitant]
     Active Substance: ACETAMINOPHEN
     Dates: start: 20160926, end: 20161005
  10. BACLOFEN [Concomitant]
     Active Substance: BACLOFEN
     Indication: Muscle spasms
     Route: 048
     Dates: start: 20140131, end: 20140630
  11. BACLOFEN [Concomitant]
     Active Substance: BACLOFEN
     Indication: Multiple sclerosis
     Route: 048
     Dates: start: 20150924, end: 20151118
  12. BACLOFEN [Concomitant]
     Active Substance: BACLOFEN
     Route: 048
     Dates: start: 20151119, end: 20151202
  13. BACLOFEN [Concomitant]
     Active Substance: BACLOFEN
     Route: 048
     Dates: start: 20151203, end: 20160427
  14. BACLOFEN [Concomitant]
     Active Substance: BACLOFEN
     Route: 048
     Dates: start: 20160504, end: 20160727
  15. BACLOFEN [Concomitant]
     Active Substance: BACLOFEN
     Route: 048
     Dates: start: 20160728
  16. BACLOFEN [Concomitant]
     Active Substance: BACLOFEN
     Route: 048
     Dates: start: 20140911, end: 20161016
  17. BACLOFEN [Concomitant]
     Active Substance: BACLOFEN
     Route: 048
     Dates: start: 20131015, end: 20140130
  18. BACLOFEN [Concomitant]
     Active Substance: BACLOFEN
     Route: 048
     Dates: start: 20200403
  19. CALCIUM CARBONATE [Concomitant]
     Active Substance: CALCIUM CARBONATE
     Indication: Osteoporosis
     Route: 048
     Dates: start: 20170915
  20. CHOLECALCIFEROL [Concomitant]
     Active Substance: CHOLECALCIFEROL
     Indication: Prophylaxis
     Route: 048
     Dates: start: 20160519
  21. CHOLECALCIFEROL [Concomitant]
     Active Substance: CHOLECALCIFEROL
     Dates: start: 20131226, end: 20160518
  22. OXIBUTIN [Concomitant]
     Dates: start: 20151103
  23. PAROXETINE [Concomitant]
     Active Substance: PAROXETINE
     Indication: Anxiety
     Route: 048
     Dates: start: 201102, end: 20150226
  24. PAROXETINE [Concomitant]
     Active Substance: PAROXETINE
     Route: 048
     Dates: start: 20150307
  25. SIMVASTATIN [Concomitant]
     Active Substance: SIMVASTATIN
     Indication: Multiple sclerosis
     Route: 048
     Dates: start: 20160519
  26. SIMVASTATIN [Concomitant]
     Active Substance: SIMVASTATIN
     Route: 048
     Dates: start: 20190727

REACTIONS (2)
  - Pneumonia [Recovered/Resolved]
  - Pneumonia [Recovering/Resolving]

NARRATIVE: CASE EVENT DATE: 20190111
